FAERS Safety Report 7710700-3 (Version None)
Quarter: 2011Q3

REPORT INFORMATION
  Report Type: 
  Country: None (occurrence: None)
  Receive Date: 20110825
  Receipt Date: 20110818
  Transmission Date: 20111222
  Serious: Yes (Other)
  Sender: FDA-Public Use
  Company Number: PHEH2009US07548

PATIENT
  Sex: Female

DRUGS (9)
  1. CLINDAMYCIN [Concomitant]
     Dosage: 300 MG, QID
  2. PERIDEX [Concomitant]
  3. ZOLOFT [Concomitant]
  4. INTERFERON [Concomitant]
  5. AREDIA [Suspect]
  6. ASPIRIN [Concomitant]
  7. DEXEDRINE [Concomitant]
  8. ZOMETA [Suspect]
  9. VICODIN ES [Concomitant]

REACTIONS (12)
  - NAUSEA [None]
  - PAIN IN JAW [None]
  - RIB FRACTURE [None]
  - GENERAL PHYSICAL HEALTH DETERIORATION [None]
  - PAIN [None]
  - ANXIETY [None]
  - INTERVERTEBRAL DISC DEGENERATION [None]
  - MULTIPLE MYELOMA [None]
  - ANHEDONIA [None]
  - METASTASES TO BONE [None]
  - OSTEONECROSIS OF JAW [None]
  - EXPOSED BONE IN JAW [None]
